FAERS Safety Report 4303599-9 (Version None)
Quarter: 2004Q1

REPORT INFORMATION
  Report Type: 
  Country: None (occurrence: None)
  Receive Date: 20040223
  Receipt Date: 20040220
  Transmission Date: 20041129
  Serious: Yes (Hospitalization)
  Sender: FDA-Public Use
  Company Number: MK200402-0203-1

PATIENT
  Age: 40 Year
  Sex: Female

DRUGS (1)
  1. ANAFRANIL CAP [Suspect]
     Dosage: 75 MG
     Dates: start: 20030501, end: 20031031

REACTIONS (5)
  - DISTURBANCE IN SOCIAL BEHAVIOUR [None]
  - DRY MOUTH [None]
  - HYPOTENSION [None]
  - PERSONALITY DISORDER [None]
  - TREMOR [None]
